FAERS Safety Report 7993252-2 (Version None)
Quarter: 2011Q4

REPORT INFORMATION
  Report Type: 
  Country: None (occurrence: None)
  Receive Date: 20111219
  Receipt Date: 20110914
  Transmission Date: 20120403
  Serious: No
  Sender: FDA-Public Use
  Company Number: US-ASTRAZENECA-2011SE55329

PATIENT
  Sex: Male

DRUGS (2)
  1. LOTREL [Concomitant]
  2. CRESTOR [Suspect]
     Route: 048

REACTIONS (1)
  - DYSURIA [None]
